FAERS Safety Report 5227159-0 (Version None)
Quarter: 2007Q1

REPORT INFORMATION
  Report Type: 
  Country: None (occurrence: None)
  Receive Date: 20070201
  Receipt Date: 20070201
  Transmission Date: 20070707
  Serious: Yes (Hospitalization)
  Sender: FDA-Public Use
  Company Number: None

PATIENT
  Age: 34 Year
  Sex: Male
  Weight: 95.2554 kg

DRUGS (1)
  1. LIPITOR [Suspect]
     Indication: HYPERCHOLESTEROLAEMIA
     Dosage: 10 MG QD PO
     Route: 048
     Dates: start: 19980415, end: 20021010

REACTIONS (11)
  - BIOPSY BRAIN ABNORMAL [None]
  - COGNITIVE DISORDER [None]
  - CONFUSIONAL STATE [None]
  - COORDINATION ABNORMAL [None]
  - DISORIENTATION [None]
  - HEADACHE [None]
  - IMPAIRED WORK ABILITY [None]
  - LETHARGY [None]
  - MELAS SYNDROME [None]
  - NEURODEGENERATIVE DISORDER [None]
  - PHARMACEUTICAL PRODUCT COMPLAINT [None]
